FAERS Safety Report 26137073 (Version 1)
Quarter: 2025Q4

REPORT INFORMATION
  Report Type: Report from Study
  Country: EU (occurrence: EU)
  Receive Date: 20251209
  Receipt Date: 20251209
  Transmission Date: 20260118
  Serious: Yes (Other)
  Sender: MYLAN
  Company Number: EU-002147023-NVSC2025PT136995

PATIENT
  Age: 65 Year
  Sex: Female

DRUGS (44)
  1. PANTOPRAZOLE [Suspect]
     Active Substance: PANTOPRAZOLE
     Indication: Product used for unknown indication
     Dosage: UNK, QD
  2. PANTOPRAZOLE [Suspect]
     Active Substance: PANTOPRAZOLE
     Dosage: UNK, QD
     Route: 065
  3. PANTOPRAZOLE [Suspect]
     Active Substance: PANTOPRAZOLE
     Dosage: UNK, QD
     Route: 065
  4. PANTOPRAZOLE [Suspect]
     Active Substance: PANTOPRAZOLE
     Dosage: UNK, QD
  5. LETROZOLE [Suspect]
     Active Substance: LETROZOLE
     Indication: Product used for unknown indication
     Dosage: UNK
  6. LETROZOLE [Suspect]
     Active Substance: LETROZOLE
     Dosage: UNK
     Route: 065
  7. LETROZOLE [Suspect]
     Active Substance: LETROZOLE
     Dosage: UNK
     Route: 065
  8. LETROZOLE [Suspect]
     Active Substance: LETROZOLE
     Dosage: UNK
  9. EZETIMIBE\SIMVASTATIN [Suspect]
     Active Substance: EZETIMIBE\SIMVASTATIN
     Indication: Product used for unknown indication
     Dosage: 40 MG + 10 MG, QD (AT NIGHT)
  10. EZETIMIBE\SIMVASTATIN [Suspect]
     Active Substance: EZETIMIBE\SIMVASTATIN
     Dosage: 40 MG + 10 MG, QD (AT NIGHT)
     Route: 065
  11. EZETIMIBE\SIMVASTATIN [Suspect]
     Active Substance: EZETIMIBE\SIMVASTATIN
     Dosage: 40 MG + 10 MG, QD (AT NIGHT)
     Route: 065
  12. EZETIMIBE\SIMVASTATIN [Suspect]
     Active Substance: EZETIMIBE\SIMVASTATIN
     Dosage: 40 MG + 10 MG, QD (AT NIGHT)
  13. KISQALI [Suspect]
     Active Substance: RIBOCICLIB SUCCINATE
     Indication: Breast cancer metastatic
     Dosage: 600 MILLIGRAM, QD
     Dates: start: 20250822
  14. KISQALI [Suspect]
     Active Substance: RIBOCICLIB SUCCINATE
     Indication: Breast cancer
     Dosage: 600 MILLIGRAM, QD
     Dates: start: 20250822
  15. KISQALI [Suspect]
     Active Substance: RIBOCICLIB SUCCINATE
     Dosage: 600 MILLIGRAM, QD
     Route: 048
     Dates: start: 20250822
  16. KISQALI [Suspect]
     Active Substance: RIBOCICLIB SUCCINATE
     Dosage: 600 MILLIGRAM, QD
     Route: 048
     Dates: start: 20250822
  17. KISQALI [Suspect]
     Active Substance: RIBOCICLIB SUCCINATE
     Dosage: 400 MILLIGRAM, QD
  18. KISQALI [Suspect]
     Active Substance: RIBOCICLIB SUCCINATE
     Dosage: 400 MILLIGRAM, QD
  19. KISQALI [Suspect]
     Active Substance: RIBOCICLIB SUCCINATE
     Dosage: 400 MILLIGRAM, QD
     Route: 048
  20. KISQALI [Suspect]
     Active Substance: RIBOCICLIB SUCCINATE
     Dosage: 400 MILLIGRAM, QD
     Route: 048
  21. CHOLECALCIFEROL [Concomitant]
     Active Substance: CHOLECALCIFEROL
     Indication: Product used for unknown indication
     Dosage: 10 DROPS, QD
  22. CHOLECALCIFEROL [Concomitant]
     Active Substance: CHOLECALCIFEROL
     Dosage: 10 DROPS, QD
     Route: 065
  23. CHOLECALCIFEROL [Concomitant]
     Active Substance: CHOLECALCIFEROL
     Dosage: 10 DROPS, QD
     Route: 065
  24. CHOLECALCIFEROL [Concomitant]
     Active Substance: CHOLECALCIFEROL
     Dosage: 10 DROPS, QD
  25. DEFLAZACORT [Concomitant]
     Active Substance: DEFLAZACORT
     Indication: Product used for unknown indication
     Dosage: UNK UNK, QD
  26. DEFLAZACORT [Concomitant]
     Active Substance: DEFLAZACORT
     Dosage: UNK UNK, QD
     Route: 065
  27. DEFLAZACORT [Concomitant]
     Active Substance: DEFLAZACORT
     Dosage: UNK UNK, QD
     Route: 065
  28. DEFLAZACORT [Concomitant]
     Active Substance: DEFLAZACORT
     Dosage: UNK UNK, QD
  29. GLYXAMBI [Concomitant]
     Active Substance: EMPAGLIFLOZIN\LINAGLIPTIN
     Indication: Product used for unknown indication
     Dosage: 25/5 MG, QD
  30. GLYXAMBI [Concomitant]
     Active Substance: EMPAGLIFLOZIN\LINAGLIPTIN
     Dosage: 25/5 MG, QD
     Route: 065
  31. GLYXAMBI [Concomitant]
     Active Substance: EMPAGLIFLOZIN\LINAGLIPTIN
     Dosage: 25/5 MG, QD
     Route: 065
  32. GLYXAMBI [Concomitant]
     Active Substance: EMPAGLIFLOZIN\LINAGLIPTIN
     Dosage: 25/5 MG, QD
  33. Structomax [Concomitant]
     Indication: Product used for unknown indication
     Dosage: UNK UNK, QD
  34. Structomax [Concomitant]
     Dosage: UNK UNK, QD
     Route: 065
  35. Structomax [Concomitant]
     Dosage: UNK UNK, QD
     Route: 065
  36. Structomax [Concomitant]
     Dosage: UNK UNK, QD
  37. LASIX [Concomitant]
     Active Substance: FUROSEMIDE
     Indication: Product used for unknown indication
     Dosage: 40 MILLIGRAM, QD (HALF TABLET)
  38. LASIX [Concomitant]
     Active Substance: FUROSEMIDE
     Dosage: 40 MILLIGRAM, QD (HALF TABLET)
     Route: 065
  39. LASIX [Concomitant]
     Active Substance: FUROSEMIDE
     Dosage: 40 MILLIGRAM, QD (HALF TABLET)
     Route: 065
  40. LASIX [Concomitant]
     Active Substance: FUROSEMIDE
     Dosage: 40 MILLIGRAM, QD (HALF TABLET)
  41. TRESIBA [Concomitant]
     Active Substance: INSULIN DEGLUDEC
     Indication: Product used for unknown indication
     Dosage: 14 UNITS IN THE MORNING
  42. TRESIBA [Concomitant]
     Active Substance: INSULIN DEGLUDEC
     Dosage: 14 UNITS IN THE MORNING
     Route: 065
  43. TRESIBA [Concomitant]
     Active Substance: INSULIN DEGLUDEC
     Dosage: 14 UNITS IN THE MORNING
     Route: 065
  44. TRESIBA [Concomitant]
     Active Substance: INSULIN DEGLUDEC
     Dosage: 14 UNITS IN THE MORNING

REACTIONS (13)
  - Renal impairment [Unknown]
  - Electrocardiogram repolarisation abnormality [Unknown]
  - Nausea [Recovered/Resolved]
  - Mean cell haemoglobin concentration decreased [Unknown]
  - Lymphocyte count increased [Unknown]
  - Blood urea increased [Unknown]
  - Blood creatinine increased [Unknown]
  - Glomerular filtration rate decreased [Unknown]
  - Blood calcium increased [Unknown]
  - Laboratory test abnormal [Unknown]
  - Haemoglobin decreased [Unknown]
  - Red cell distribution width decreased [Unknown]
  - Peripheral swelling [Recovered/Resolved]

NARRATIVE: CASE EVENT DATE: 20250822
